FAERS Safety Report 21213132 (Version 1)
Quarter: 2022Q3

REPORT INFORMATION
  Report Type: Spontaneous
  Country: CN (occurrence: CN)
  Receive Date: 20220815
  Receipt Date: 20220815
  Transmission Date: 20221027
  Serious: Yes (Other)
  Sender: FDA-Public Use
  Company Number: None

PATIENT
  Age: 48 Year
  Sex: Female
  Weight: 71 kg

DRUGS (6)
  1. CYCLOPHOSPHAMIDE [Suspect]
     Active Substance: CYCLOPHOSPHAMIDE
     Indication: Breast cancer female
     Dosage: 0.8 G, QD, DILUTED WITH SODIUM CHLORIDE 250 ML WITH 50 DROPS/MIN
     Route: 041
     Dates: start: 20220607, end: 20220607
  2. SODIUM CHLORIDE [Suspect]
     Active Substance: SODIUM CHLORIDE
     Indication: Medication dilution
     Dosage: 250 ML, QD, DILUTED WITH CYCLOPHOSPHAMIDE 0.8 G WITH 50 DROPS/MIN
     Route: 041
     Dates: start: 20220607, end: 20220607
  3. SODIUM CHLORIDE [Suspect]
     Active Substance: SODIUM CHLORIDE
     Dosage: 500 ML, QD, DILUTED WITH DOCETAXEL 120 MG
     Route: 041
     Dates: start: 20220607, end: 20220607
  4. SODIUM CHLORIDE [Suspect]
     Active Substance: SODIUM CHLORIDE
     Dosage: 100 ML, QD, DILUTED WITH EPIRUBICIN HYDROCHLORIDE 80 MG
     Route: 041
     Dates: start: 20220607, end: 20220607
  5. DOCETAXEL [Suspect]
     Active Substance: DOCETAXEL
     Indication: Breast cancer female
     Dosage: 120 MG, QD, DILUTED WITH SODIUM CHLORIDE 500 ML
     Route: 041
     Dates: start: 20220607, end: 20220607
  6. EPIRUBICIN [Suspect]
     Active Substance: EPIRUBICIN
     Indication: Breast cancer female
     Dosage: 80 MG, QD, DILUTED WITH SODIUM CHLORIDE 100 ML
     Route: 041
     Dates: start: 20220607, end: 20220607

REACTIONS (2)
  - Myelosuppression [Recovered/Resolved]
  - Malaise [Recovered/Resolved]

NARRATIVE: CASE EVENT DATE: 20220608
